FAERS Safety Report 10032657 (Version 4)
Quarter: 2015Q2

REPORT INFORMATION
  Report Type: Spontaneous
  Country: US (occurrence: US)
  Receive Date: 20140324
  Receipt Date: 20150429
  Transmission Date: 20150821
  Serious: Yes (Hospitalization, Other)
  Sender: FDA-Public Use
  Company Number: US-GLAXOSMITHKLINE-A1066355A

PATIENT
  Sex: Female

DRUGS (5)
  1. NASONEX [Concomitant]
     Active Substance: MOMETASONE FUROATE
  2. ADVAIR HFA [Suspect]
     Active Substance: FLUTICASONE PROPIONATE\SALMETEROL XINAFOATE
     Indication: ASTHMA
     Dosage: UNK, U
     Route: 065
     Dates: start: 2005
  3. NASOCORT [Concomitant]
     Active Substance: BUDESONIDE
  4. VENTOLIN [Suspect]
     Active Substance: ALBUTEROL SULFATE
     Indication: ASTHMA
     Dosage: UNK, U
     Route: 065
     Dates: start: 1985
  5. COREG CR [Suspect]
     Active Substance: CARVEDILOL PHOSPHATE
     Indication: BLOOD PRESSURE ABNORMAL
     Dosage: 40 MG, UNKNOWN DOSING STARTED ON 19 OCTOBER 2007 THEN 20 MG, UNKNOWN DOSING BEGINNING ON 12 JULY 201
     Route: 065
     Dates: start: 20071019

REACTIONS (3)
  - Hospitalisation [Unknown]
  - Cancer surgery [Unknown]
  - Mastectomy [Unknown]
